FAERS Safety Report 21051343 (Version 1)
Quarter: 2022Q3

REPORT INFORMATION
  Report Type: Spontaneous
  Country: US (occurrence: US)
  Receive Date: 20220707
  Receipt Date: 20220707
  Transmission Date: 20221027
  Serious: Yes (Hospitalization)
  Sender: FDA-Public Use
  Company Number: US-APOTEX-2022AP009880

PATIENT
  Age: 21 Year
  Sex: Male

DRUGS (4)
  1. RISPERIDONE [Suspect]
     Active Substance: RISPERIDONE
     Indication: Schizophrenia
     Dosage: 6 MILLIGRAM, QD
     Route: 065
  2. RISPERIDONE [Suspect]
     Active Substance: RISPERIDONE
     Dosage: 10 MILLIGRAM, QD
     Route: 065
  3. FLUPHENAZINE [Concomitant]
     Active Substance: FLUPHENAZINE
     Indication: Schizophrenia
     Dosage: 20 MILLIGRAM, QD
     Route: 065
  4. ARIPIPRAZOLE [Concomitant]
     Active Substance: ARIPIPRAZOLE
     Indication: Schizophrenia
     Dosage: 30 MILLIGRAM, QD
     Route: 065

REACTIONS (3)
  - Drug level below therapeutic [Unknown]
  - Orthostatic intolerance [Unknown]
  - Therapeutic response decreased [Unknown]
